FAERS Safety Report 7901343-7 (Version None)
Quarter: 2011Q4

REPORT INFORMATION
  Report Type: 
  Country: None (occurrence: None)
  Receive Date: 20111108
  Receipt Date: 20111104
  Transmission Date: 20120403
  Serious: Yes (Death)
  Sender: FDA-Public Use
  Company Number: PHHY2011NL91663

PATIENT
  Sex: Male

DRUGS (14)
  1. SINTROM [Concomitant]
  2. OMEPRAZOLE [Concomitant]
     Dosage: 40 X1
  3. AVODART [Concomitant]
     Dosage: 0.5 UNK, ONCE/SINGLE
  4. ZOLADEX [Concomitant]
  5. ATACAND [Concomitant]
     Dosage: 1 X4
  6. ZOMETA [Suspect]
     Dosage: 4 MG,/5ML, EVERY 4 WEEKS
     Dates: start: 20110928
  7. SELOKEEN [Concomitant]
     Dosage: 50 X1
  8. ZOMETA [Suspect]
     Indication: PROSTATE CANCER METASTATIC
     Dosage: 4 MG,/5ML, EVERY 4 WEEKS
     Dates: start: 20110901
  9. MONOCEDOCARD [Concomitant]
     Dosage: 100 X1
  10. CASODEX [Concomitant]
     Dosage: 50 UNK, ONCE/SINGLE
  11. SPIRIVA [Concomitant]
     Dosage: 18X1
  12. GLIMEPIRIDE [Concomitant]
     Dosage: 1 X2
  13. FUROSEMIDE [Concomitant]
     Dosage: 40 X1
  14. FORMOTEROL FUMARATE [Concomitant]

REACTIONS (1)
  - DEATH [None]
